FAERS Safety Report 18113936 (Version 1)
Quarter: 2020Q3

REPORT INFORMATION
  Report Type: Spontaneous
  Country: US (occurrence: US)
  Receive Date: 20200805
  Receipt Date: 20200805
  Transmission Date: 20201103
  Serious: Yes (Hospitalization)
  Sender: FDA-Public Use
  Company Number: None

PATIENT
  Age: 96 Year
  Sex: Male

DRUGS (2)
  1. FUROSEMIDE (FUROSEMIDE 80MG TAB) [Suspect]
     Active Substance: FUROSEMIDE
     Indication: CARDIAC FAILURE CONGESTIVE
     Route: 048
     Dates: start: 20040618, end: 20200714
  2. METOPROLOL (METOPROLOL SUCCINATE 25MG TAB, SA) [Suspect]
     Active Substance: METOPROLOL SUCCINATE
     Indication: HYPERTENSION
     Route: 048
     Dates: start: 20200709

REACTIONS (6)
  - Cardiac failure congestive [None]
  - Fluid overload [None]
  - Oedema [None]
  - Dyspnoea [None]
  - Weight increased [None]
  - Diarrhoea [None]

NARRATIVE: CASE EVENT DATE: 20200729
